FAERS Safety Report 7734542-8 (Version None)
Quarter: 2011Q3

REPORT INFORMATION
  Report Type: 
  Country: None (occurrence: None)
  Receive Date: 20110907
  Receipt Date: 20110824
  Transmission Date: 20111222
  Serious: Yes (Hospitalization, Disabling)
  Sender: FDA-Public Use
  Company Number: GB-GLAXOSMITHKLINE-B0337631A

PATIENT
  Sex: Female

DRUGS (9)
  1. PHENYTOIN [Suspect]
     Indication: CONVULSION
     Dosage: 9MG PER DAY
     Route: 065
  2. IBUPROFEN [Concomitant]
  3. VITAMIN TAB [Concomitant]
  4. PENICILLIN [Suspect]
     Indication: PRODUCT USED FOR UNKNOWN INDICATION
     Route: 065
  5. ZINC [Concomitant]
  6. BIOCAL [Concomitant]
  7. AUGMENTIN '125' [Suspect]
     Indication: PRODUCT USED FOR UNKNOWN INDICATION
     Route: 065
     Dates: start: 19960101
  8. MELATONIN [Concomitant]
     Dosage: 10MG AT NIGHT
  9. LAMICTAL [Suspect]
     Indication: CONVULSION
     Dosage: 75MG TWICE PER DAY
     Route: 048

REACTIONS (24)
  - PHARYNGEAL OEDEMA [None]
  - UPPER LIMB FRACTURE [None]
  - IMPAIRED SELF-CARE [None]
  - PAIN [None]
  - CRYING [None]
  - DIARRHOEA [None]
  - LACTOSE INTOLERANCE [None]
  - DRUG INEFFECTIVE [None]
  - ABNORMAL FAECES [None]
  - BODY TEMPERATURE DECREASED [None]
  - PERIPHERAL COLDNESS [None]
  - CANDIDIASIS [None]
  - CONVULSION [None]
  - VOMITING PROJECTILE [None]
  - AUTISM [None]
  - TREMOR [None]
  - EPISTAXIS [None]
  - UPPER RESPIRATORY TRACT INFECTION [None]
  - EPILEPSY [None]
  - COGNITIVE DISORDER [None]
  - DRUG HYPERSENSITIVITY [None]
  - URINARY RETENTION [None]
  - RASH [None]
  - INCONTINENCE [None]
